FAERS Safety Report 5644694-1 (Version None)
Quarter: 2008Q1

REPORT INFORMATION
  Report Type: 
  Country: None (occurrence: None)
  Receive Date: 20080229
  Receipt Date: 20070531
  Transmission Date: 20080703
  Serious: No
  Sender: FDA-Public Use
  Company Number: A0653707A

PATIENT
  Age: 20 Year
  Sex: Female

DRUGS (2)
  1. VALTREX [Suspect]
     Indication: GENITAL HERPES
     Dosage: 500MG PER DAY
     Route: 048
     Dates: start: 20070430
  2. TRI CYCLEN [Concomitant]

REACTIONS (2)
  - DYSPAREUNIA [None]
  - VULVOVAGINAL DRYNESS [None]
